FAERS Safety Report 15401546 (Version 1)
Quarter: 2018Q3

REPORT INFORMATION
  Report Type: Spontaneous
  Country: US (occurrence: US)
  Receive Date: 20180914
  Receipt Date: 20180914
  Transmission Date: 20181010
  Serious: Yes (Life-Threatening, Other)
  Sender: FDA-Public Use
  Company Number: None

PATIENT
  Age: 52 Year
  Sex: Male
  Weight: 86.18 kg

DRUGS (1)
  1. KEVZARA [Suspect]
     Active Substance: SARILUMAB
     Route: 058
     Dates: start: 20180903, end: 20180903

REACTIONS (4)
  - Throat tightness [None]
  - Feeling hot [None]
  - Myalgia [None]
  - Angioedema [None]

NARRATIVE: CASE EVENT DATE: 20180904
